FAERS Safety Report 7371637-5 (Version None)
Quarter: 2011Q1

REPORT INFORMATION
  Report Type: 
  Country: None (occurrence: None)
  Receive Date: 20110322
  Receipt Date: 20110322
  Transmission Date: 20110831
  Serious: Yes (Other)
  Sender: FDA-Public Use
  Company Number: None

PATIENT
  Age: 49 Year
  Sex: Female
  Weight: 56.6996 kg

DRUGS (1)
  1. MONISTAT [Suspect]
     Indication: FUNGAL INFECTION
     Dosage: 1200MG SINGLE USE VAG
     Route: 067
     Dates: start: 20110321, end: 20110321

REACTIONS (3)
  - VULVOVAGINAL SWELLING [None]
  - VULVOVAGINAL PAIN [None]
  - VULVOVAGINAL BURNING SENSATION [None]
